FAERS Safety Report 7381263-X (Version None)
Quarter: 2011Q1

REPORT INFORMATION
  Report Type: 
  Country: None (occurrence: None)
  Receive Date: 20110329
  Receipt Date: 20110323
  Transmission Date: 20110831
  Serious: Yes (Other)
  Sender: FDA-Public Use
  Company Number: US-B.I. PHARMACEUTICALS,INC./RIDGEFIELD-2011-BP-09032BP

PATIENT
  Sex: Female

DRUGS (10)
  1. LISINOPRIL [Concomitant]
  2. ALBUTEROL SULFATE AUTOHALER [Concomitant]
  3. FEXOFENADINE HCL [Concomitant]
  4. ADVAIR DISKUS 100/50 [Suspect]
     Indication: ASTHMA
     Dosage: 4 PUF
     Route: 055
     Dates: start: 20020101, end: 20090401
  5. MONTELUKAST SODIUM [Concomitant]
  6. SUCRALFATE [Concomitant]
  7. FLOVENT [Suspect]
     Indication: ASTHMA
     Dosage: 4 PUF
     Route: 055
     Dates: start: 20100101
  8. CLONIDINE [Concomitant]
  9. SPIRIVA [Suspect]
     Indication: ASTHMA
     Dates: start: 20020101, end: 20080301
  10. VENLAFAXINE HCL [Concomitant]

REACTIONS (7)
  - ASTHMA [None]
  - BLOOD PRESSURE DIASTOLIC INCREASED [None]
  - BLOOD PRESSURE INCREASED [None]
  - MALAISE [None]
  - CHEST PAIN [None]
  - DEVICE THERAPY [None]
  - DRUG INEFFECTIVE [None]
